FAERS Safety Report 20157737 (Version 1)
Quarter: 2021Q4

REPORT INFORMATION
  Report Type: Spontaneous
  Country: CA (occurrence: CA)
  Receive Date: 20211207
  Receipt Date: 20211207
  Transmission Date: 20220303
  Serious: Yes (Other)
  Sender: FDA-Public Use
  Company Number: CA-ALLERGAN-2141075US

PATIENT
  Sex: Female

DRUGS (2)
  1. BOTOX [Suspect]
     Active Substance: ONABOTULINUMTOXINA
     Indication: Product used for unknown indication
     Dosage: UNK UNK, SINGLE
     Route: 030
  2. FREMANEZUMAB [Suspect]
     Active Substance: FREMANEZUMAB
     Indication: Migraine prophylaxis
     Dosage: 225 MG, Q MONTH
     Route: 058

REACTIONS (6)
  - Chills [Unknown]
  - Contusion [Unknown]
  - Fatigue [Unknown]
  - Lip haemorrhage [Unknown]
  - Erythema [Unknown]
  - Drug ineffective [Unknown]
